FAERS Safety Report 7933940-7 (Version None)
Quarter: 2011Q4

REPORT INFORMATION
  Report Type: 
  Country: None (occurrence: None)
  Receive Date: 20111122
  Receipt Date: 20111116
  Transmission Date: 20120403
  Serious: Yes (Hospitalization)
  Sender: FDA-Public Use
  Company Number: JP-JNJFOC-20111108154

PATIENT
  Age: 69 Year
  Sex: Male
  Weight: 53 kg

DRUGS (3)
  1. REMICADE [Suspect]
     Indication: RHEUMATOID ARTHRITIS
     Route: 042
     Dates: start: 20110909
  2. METHOTREXATE [Suspect]
     Indication: PRODUCT USED FOR UNKNOWN INDICATION
     Route: 048
     Dates: start: 20110816
  3. REMICADE [Suspect]
     Dosage: TOTAL OF 2 INFUSIONS
     Route: 042
     Dates: start: 20110927

REACTIONS (1)
  - PNEUMOCYSTIS JIROVECI PNEUMONIA [None]
